FAERS Safety Report 5809995-2 (Version None)
Quarter: 2008Q3

REPORT INFORMATION
  Report Type: 
  Country: None (occurrence: None)
  Receive Date: 20080715
  Receipt Date: 20080710
  Transmission Date: 20090109
  Serious: Yes (Hospitalization)
  Sender: FDA-Public Use
  Company Number: DE-ABBOTT-08P-062-0461703-00

PATIENT
  Sex: Female
  Weight: 53 kg

DRUGS (2)
  1. KALETRA [Suspect]
     Indication: HIV INFECTION
     Dosage: 2X2 TABS, 800/200 MG, DAILY
     Route: 048
     Dates: start: 20070615
  2. EMTRICITABINE [Suspect]
     Indication: HIV INFECTION
     Dosage: 1X1, 245/200 MG, DAILY
     Route: 048
     Dates: start: 20070615

REACTIONS (2)
  - ABORTION INDUCED [None]
  - HIGH RISK PREGNANCY [None]
